FAERS Safety Report 25272785 (Version 1)
Quarter: 2025Q2

REPORT INFORMATION
  Report Type: Spontaneous
  Country: US (occurrence: US)
  Receive Date: 20250506
  Receipt Date: 20250506
  Transmission Date: 20250716
  Serious: Yes (Hospitalization, Other)
  Sender: ZYDUS PHARM
  Company Number: US-CADILA HEALTHCARE LIMITED-US-ZYDUS-122593

PATIENT

DRUGS (5)
  1. AZITHROMYCIN [Interacting]
     Active Substance: AZITHROMYCIN
     Indication: Cryptosporidiosis infection
     Route: 065
  2. MYCOPHENOLIC ACID [Suspect]
     Active Substance: MYCOPHENOLIC ACID
     Indication: Immunosuppression
     Route: 065
  3. TACROLIMUS [Interacting]
     Active Substance: TACROLIMUS
     Indication: Immunosuppression
     Route: 065
  4. PREDNISONE [Suspect]
     Active Substance: PREDNISONE
     Indication: Immunosuppression
     Route: 065
  5. NITAZOXANIDE [Interacting]
     Active Substance: NITAZOXANIDE
     Indication: Cryptosporidiosis infection
     Route: 065

REACTIONS (3)
  - Pulmonary toxicity [Recovered/Resolved]
  - Drug interaction [Unknown]
  - Cryptosporidiosis infection [Unknown]
